FAERS Safety Report 24668642 (Version 21)
Quarter: 2025Q2

REPORT INFORMATION
  Report Type: Spontaneous
  Country: CA (occurrence: CA)
  Receive Date: 20241127
  Receipt Date: 20250625
  Transmission Date: 20250716
  Serious: Yes (Death, Life-Threatening, Hospitalization, Disabling, Congenital Anomaly, Other)
  Sender: BAUSCH AND LOMB
  Company Number: CA-BAUSCHBL-2024BNL038036

PATIENT
  Age: 43 Year
  Sex: Female
  Weight: 96 kg

DRUGS (14)
  1. PHENYLEPHRINE HYDROCHLORIDE [Suspect]
     Active Substance: PHENYLEPHRINE HYDROCHLORIDE
     Indication: Product used for unknown indication
     Route: 065
  2. TRIAMCINOLONE ACETONIDE [Suspect]
     Active Substance: TRIAMCINOLONE ACETONIDE
     Indication: Rheumatoid arthritis
     Route: 014
  3. DICLOFENAC SODIUM [Suspect]
     Active Substance: DICLOFENAC SODIUM
     Indication: Osteoarthritis
     Route: 047
  4. DICLOFENAC SODIUM [Suspect]
     Active Substance: DICLOFENAC SODIUM
     Indication: Inflammation
     Route: 058
  5. DICLOFENAC SODIUM [Suspect]
     Active Substance: DICLOFENAC SODIUM
     Indication: Rheumatoid arthritis
     Route: 065
  6. DEVICE [Suspect]
     Active Substance: DEVICE
     Indication: Product used for unknown indication
     Route: 047
  7. ERYTHROMYCIN [Suspect]
     Active Substance: ERYTHROMYCIN
     Indication: Product used for unknown indication
     Route: 065
  8. HYDROCORTISONE BUTYRATE [Suspect]
     Active Substance: HYDROCORTISONE BUTYRATE
     Indication: Rheumatoid arthritis
     Route: 050
  9. HYDROCORTISONE BUTYRATE [Suspect]
     Active Substance: HYDROCORTISONE BUTYRATE
     Route: 048
  10. HYDROCORTISONE BUTYRATE [Suspect]
     Active Substance: HYDROCORTISONE BUTYRATE
     Route: 065
  11. TRAMADOL HYDROCHLORIDE [Suspect]
     Active Substance: TRAMADOL HYDROCHLORIDE
     Indication: Product used for unknown indication
     Route: 065
  12. HYDROCORTISONE ACETATE [Suspect]
     Active Substance: HYDROCORTISONE ACETATE
     Indication: Rheumatoid arthritis
     Route: 065
  13. DILTIAZEM HYDROCHLORIDE [Suspect]
     Active Substance: DILTIAZEM HYDROCHLORIDE
     Indication: Product used for unknown indication
     Route: 065
  14. TRETINOIN [Suspect]
     Active Substance: TRETINOIN
     Indication: Product used for unknown indication
     Route: 065

REACTIONS (69)
  - Condition aggravated [Fatal]
  - Pemphigus [Fatal]
  - Systemic lupus erythematosus [Fatal]
  - Osteoporosis [Fatal]
  - Laryngitis [Fatal]
  - Infusion related reaction [Fatal]
  - Exostosis [Fatal]
  - Rheumatoid arthritis [Fatal]
  - General physical health deterioration [Fatal]
  - Visual impairment [Fatal]
  - Crohn^s disease [Fatal]
  - Hypercholesterolaemia [Fatal]
  - Hypersensitivity [Fatal]
  - Colitis ulcerative [Fatal]
  - Hepatic cirrhosis [Fatal]
  - Duodenal ulcer perforation [Fatal]
  - Fibromyalgia [Fatal]
  - Helicobacter infection [Fatal]
  - Pneumonia [Fatal]
  - Liver injury [Fatal]
  - Pericarditis [Fatal]
  - Retinitis [Fatal]
  - Ear infection [Fatal]
  - Osteoarthritis [Fatal]
  - Knee arthroplasty [Fatal]
  - Psoriatic arthropathy [Fatal]
  - Psoriasis [Fatal]
  - Rheumatic fever [Fatal]
  - Lupus vulgaris [Fatal]
  - Type 2 diabetes mellitus [Fatal]
  - Irritable bowel syndrome [Fatal]
  - Sleep disorder due to general medical condition, insomnia type [Fatal]
  - Nasopharyngitis [Fatal]
  - Pancreatitis [Fatal]
  - Muscle injury [Fatal]
  - Asthma [Fatal]
  - Deep vein thrombosis postoperative [Fatal]
  - Hip arthroplasty [Fatal]
  - Road traffic accident [Fatal]
  - Delirium [Fatal]
  - Depression [Fatal]
  - Live birth [Fatal]
  - Wound infection [Fatal]
  - Migraine [Fatal]
  - Tachycardia [Fatal]
  - Breast cancer stage III [Fatal]
  - Pulmonary fibrosis [Fatal]
  - Anxiety [Fatal]
  - Amnesia [Fatal]
  - Sciatica [Fatal]
  - Drug intolerance [Fatal]
  - Folliculitis [Fatal]
  - Sinusitis [Fatal]
  - Death neonatal [Fatal]
  - Eye injury [Fatal]
  - Epilepsy [Fatal]
  - Nail disorder [Fatal]
  - Rectal haemorrhage [Fatal]
  - Weight fluctuation [Fatal]
  - Drug ineffective [Fatal]
  - Contraindicated product administered [Fatal]
  - Underdose [Fatal]
  - Prescribed underdose [Fatal]
  - Off label use [Fatal]
  - Prescribed overdose [Fatal]
  - Medication error [Fatal]
  - Exposure during pregnancy [Fatal]
  - Product quality issue [Unknown]
  - No adverse event [Unknown]
